FAERS Safety Report 8321706-8 (Version None)
Quarter: 2012Q2

REPORT INFORMATION
  Report Type: 
  Country: None (occurrence: None)
  Receive Date: 20120430
  Receipt Date: 20120423
  Transmission Date: 20120825
  Serious: Yes (Other)
  Sender: FDA-Public Use
  Company Number: US-ASTRAZENECA-2012SE26320

PATIENT
  Sex: Male

DRUGS (1)
  1. CRESTOR [Suspect]
     Route: 048

REACTIONS (4)
  - TYPE 1 DIABETES MELLITUS [None]
  - BLOOD CHOLESTEROL INCREASED [None]
  - MALAISE [None]
  - CANCER IN REMISSION [None]
